FAERS Safety Report 23377342 (Version 1)
Quarter: 2024Q1

REPORT INFORMATION
  Report Type: Spontaneous
  Country: IT (occurrence: IT)
  Receive Date: 20240108
  Receipt Date: 20240108
  Transmission Date: 20240409
  Serious: Yes (Hospitalization)
  Sender: FDA-Public Use
  Company Number: IT-CIPLA LTD.-2023IT08605

PATIENT

DRUGS (2)
  1. ESOMEPRAZOLE [Suspect]
     Active Substance: ESOMEPRAZOLE
     Indication: Hyperchlorhydria
     Dosage: UNK
     Route: 065
     Dates: start: 20231129, end: 20231129
  2. KETOPROFEN LYSINE [Suspect]
     Active Substance: KETOPROFEN LYSINE
     Indication: Pain
     Dosage: UNK
     Route: 065
     Dates: start: 20231129, end: 20231129

REACTIONS (3)
  - Eyelid oedema [Recovering/Resolving]
  - Circumoral oedema [Recovering/Resolving]
  - Rash [Recovering/Resolving]

NARRATIVE: CASE EVENT DATE: 20231129
